FAERS Safety Report 11795865 (Version 1)
Quarter: 2015Q4

REPORT INFORMATION
  Report Type: Spontaneous
  Country: FR (occurrence: FR)
  Receive Date: 20151203
  Receipt Date: 20151203
  Transmission Date: 20160305
  Serious: Yes (Hospitalization)
  Sender: FDA-Public Use
  Company Number: FR-ROCHE-1670116

PATIENT
  Age: 47 Year
  Sex: Male

DRUGS (2)
  1. LOXAPAC [Suspect]
     Active Substance: LOXAPINE SUCCINATE
     Indication: DEPRESSION
     Route: 048
     Dates: start: 20151115, end: 20151118
  2. VALIUM [Suspect]
     Active Substance: DIAZEPAM
     Indication: DEPRESSION
     Route: 048
     Dates: start: 20151115

REACTIONS (3)
  - Tongue oedema [Recovered/Resolved]
  - Dystonia [Recovered/Resolved]
  - Protrusion tongue [Recovered/Resolved]

NARRATIVE: CASE EVENT DATE: 20151115
